FAERS Safety Report 8971513 (Version 1)
Quarter: 2012Q4

REPORT INFORMATION
  Report Type: 
  Country: GB (occurrence: GB)
  Receive Date: 20121217
  Receipt Date: 20121217
  Transmission Date: 20130627
  Serious: Yes (Disabling)
  Sender: FDA-Public Use
  Company Number: GB-TEVA-376055ISR

PATIENT
  Age: 74 Year
  Sex: Male

DRUGS (5)
  1. PREDNISOLONE [Suspect]
     Indication: MYALGIA
     Dosage: 40 Milligram Daily; Started with 40mg/day and then reduced
     Dates: start: 201106, end: 201106
  2. PREDNISOLONE [Suspect]
     Indication: TEMPORAL ARTERITIS
     Dosage: 30 Milligram Daily; later in jun/2011 reduced to 30mg/day till mid-july
     Dates: start: 201106, end: 201107
  3. PREDNISOLONE [Suspect]
     Dosage: 25 Milligram Daily; reduced dose to 25mg/day in mid july to Aug 2011
     Dates: start: 201107, end: 201108
  4. PREDNISOLONE [Suspect]
     Dosage: 15 Milligram Daily; from Aug/2011 to Jun/2012 remained Approx 15mg
     Dates: start: 201108, end: 201206
  5. PREDNISOLONE [Suspect]
     Dosage: 3 Milligram Daily; from Jul/2012 the dose was steadily reduced and now is on 3mg/day
     Dates: start: 201207

REACTIONS (4)
  - Tendon rupture [Unknown]
  - Pain [Unknown]
  - Muscular weakness [Unknown]
  - Fall [Unknown]
